FAERS Safety Report 12335634 (Version 1)
Quarter: 2016Q2

REPORT INFORMATION
  Report Type: Report from Study
  Country: DE (occurrence: DE)
  Receive Date: 20160505
  Receipt Date: 20160505
  Transmission Date: 20160815
  Serious: Yes (Other)
  Sender: FDA-Public Use
  Company Number: DE-ROCHE-1316254

PATIENT

DRUGS (8)
  1. RIBAVIRIN. [Suspect]
     Active Substance: RIBAVIRIN
     Indication: HEPATITIS C
     Dosage: DOSAGE OF 600 MG PER DAY FOR PATIENTS WITH A GFR HIGHER THAN 60 ML PER MIN, AT A DOSAGE OF 400 MG PE
     Route: 048
  2. PEG-INTERFERON ALFA 2A [Suspect]
     Active Substance: PEGINTERFERON ALFA-2A
     Indication: HEPATITIS C
     Dosage: FOR 12 WEEKS FOLLOWED BY 12 OR 36 WEEKS OF DUAL THERAPY
     Route: 058
  3. TACROLIMUS. [Suspect]
     Active Substance: TACROLIMUS
     Indication: PROPHYLAXIS AGAINST TRANSPLANT REJECTION
     Dosage: 3 MG/DAY (1-6)
     Route: 048
  4. CICLOSPORIN [Suspect]
     Active Substance: CYCLOSPORINE
     Indication: PROPHYLAXIS AGAINST TRANSPLANT REJECTION
     Route: 065
  5. TELAPREVIR [Suspect]
     Active Substance: TELAPREVIR
     Indication: HEPATITIS C
     Dosage: FOR 12 WEEKS FOLLOWED BY 12 OR 36 WEEKS OF DUAL THERAPY
     Route: 048
  6. CICLOSPORIN [Suspect]
     Active Substance: CYCLOSPORINE
     Route: 065
  7. MYCOPHENOLATE MOFETIL. [Suspect]
     Active Substance: MYCOPHENOLATE MOFETIL
     Indication: PROPHYLAXIS AGAINST TRANSPLANT REJECTION
     Route: 065
  8. TACROLIMUS. [Suspect]
     Active Substance: TACROLIMUS
     Dosage: 0.1 (0.1-0.2) MG/DAY
     Route: 048

REACTIONS (19)
  - Stomatitis [Recovered/Resolved]
  - Oedema [Recovered/Resolved]
  - Thrombocytopenia [Recovered/Resolved]
  - Pruritus [Recovered/Resolved]
  - Ageusia [Recovered/Resolved]
  - Hepatitis C [Unknown]
  - Leukopenia [Recovered/Resolved]
  - Anorectal disorder [Recovered/Resolved]
  - Decreased appetite [Recovered/Resolved]
  - Diarrhoea [Recovered/Resolved]
  - Renal function test abnormal [Recovered/Resolved]
  - Rash [Recovered/Resolved]
  - Weight decreased [Recovered/Resolved]
  - Pyrexia [Recovered/Resolved]
  - Myalgia [Recovered/Resolved]
  - Asthenia [Recovered/Resolved]
  - Anaemia [Recovered/Resolved]
  - Swelling face [Recovered/Resolved]
  - Blood glucose increased [Recovered/Resolved]
